FAERS Safety Report 19351131 (Version 1)
Quarter: 2021Q2

REPORT INFORMATION
  Report Type: Spontaneous
  Country: CA (occurrence: CA)
  Receive Date: 20210531
  Receipt Date: 20210531
  Transmission Date: 20210717
  Serious: Yes (Life-Threatening)
  Sender: FDA-Public Use
  Company Number: CA-ROCHE-2838908

PATIENT
  Age: 14 Year
  Sex: Male
  Weight: 43 kg

DRUGS (38)
  1. RITUXAN [Suspect]
     Active Substance: RITUXIMAB
     Dosage: 2.0 DAYS
     Route: 041
  2. ACETAMINOPHEN. [Concomitant]
     Active Substance: ACETAMINOPHEN
  3. FLUCONAZOLE. [Concomitant]
     Active Substance: FLUCONAZOLE
  4. MAGNESIUM [Concomitant]
     Active Substance: MAGNESIUM
  5. VALACYCLOVIR [Concomitant]
     Active Substance: VALACYCLOVIR HYDROCHLORIDE
  6. CYCLOPHOSPHAMIDE. [Suspect]
     Active Substance: CYCLOPHOSPHAMIDE
     Indication: BURKITT^S LYMPHOMA
     Dosage: 2.0 DAYS
     Route: 042
  7. METHOTREXATE. [Suspect]
     Active Substance: METHOTREXATE
     Indication: BURKITT^S LYMPHOMA
     Route: 042
  8. VINCRISTINE SULFATE. [Suspect]
     Active Substance: VINCRISTINE SULFATE
     Route: 042
  9. ALTEPLASE. [Concomitant]
     Active Substance: ALTEPLASE
  10. FASTURTEC [Concomitant]
     Active Substance: RASBURICASE
  11. METHYLPREDNISOLONE. [Concomitant]
     Active Substance: METHYLPREDNISOLONE
  12. ZINC. [Concomitant]
     Active Substance: ZINC
  13. CYCLOPHOSPHAMIDE. [Suspect]
     Active Substance: CYCLOPHOSPHAMIDE
     Route: 042
  14. ALLOPURINOL. [Concomitant]
     Active Substance: ALLOPURINOL
  15. CEFTAZIDIME. [Concomitant]
     Active Substance: CEFTAZIDIME
  16. ONDANSETRON [Concomitant]
     Active Substance: ONDANSETRON
  17. PREDNISONE. [Concomitant]
     Active Substance: PREDNISONE
  18. DIPHENHYDRAMINE. [Concomitant]
     Active Substance: DIPHENHYDRAMINE
  19. HYDROCORTISONE. [Concomitant]
     Active Substance: HYDROCORTISONE
  20. RANITIDINE. [Concomitant]
     Active Substance: RANITIDINE
  21. SODIUM PHOSPHATE [Concomitant]
     Active Substance: SODIUM PHOSPHATE
  22. DOXORUBICIN HYDROCHLORIDE INJECTION [Suspect]
     Active Substance: DOXORUBICIN HYDROCHLORIDE
     Indication: BURKITT^S LYMPHOMA
     Route: 042
  23. HYDROXYZINE [Concomitant]
     Active Substance: HYDROXYZINE HYDROCHLORIDE
  24. RITUXAN [Suspect]
     Active Substance: RITUXIMAB
     Indication: BURKITT^S LYMPHOMA
     Dosage: 2.0 DAYS
     Route: 041
  25. DOXORUBICIN HYDROCHLORIDE INJECTION [Suspect]
     Active Substance: DOXORUBICIN HYDROCHLORIDE
     Route: 042
  26. ACYCLOVIR. [Concomitant]
     Active Substance: ACYCLOVIR
  27. EPINEPHRINE. [Concomitant]
     Active Substance: EPINEPHRINE
  28. POLYETHYLENE GLYCOL [Concomitant]
     Active Substance: POLYETHYLENE GLYCOLS
  29. VINCRISTINE SULFATE. [Suspect]
     Active Substance: VINCRISTINE SULFATE
     Indication: BURKITT^S LYMPHOMA
     Route: 042
  30. OLANZAPINE. [Concomitant]
     Active Substance: OLANZAPINE
  31. PENTAMIDINE ISETHIONATE. [Concomitant]
     Active Substance: PENTAMIDINE ISETHIONATE
  32. VANCOMYCIN [Concomitant]
     Active Substance: VANCOMYCIN
  33. METHOTREXATE. [Suspect]
     Active Substance: METHOTREXATE
     Route: 042
  34. CYTARABINE INJECTION [Concomitant]
     Active Substance: CYTARABINE
  35. FUROSEMIDE. [Concomitant]
     Active Substance: FUROSEMIDE
  36. LEUCOVORIN. [Concomitant]
     Active Substance: LEUCOVORIN
  37. PIPERACILLINE / TAZOBACTAM [Concomitant]
     Active Substance: PIPERACILLIN SODIUM\TAZOBACTAM SODIUM
  38. POTASSIUM [Concomitant]
     Active Substance: POTASSIUM

REACTIONS (2)
  - Stomatitis [Recovered/Resolved]
  - Aplastic anaemia [Recovered/Resolved]
